FAERS Safety Report 9752703 (Version 1)
Quarter: 2013Q4

REPORT INFORMATION
  Report Type: Spontaneous
  Country: US (occurrence: None)
  Receive Date: 20131212
  Receipt Date: 20131212
  Transmission Date: 20140711
  Serious: Yes (Hospitalization)
  Sender: FDA-Public Use
  Company Number: None

PATIENT
  Sex: Female

DRUGS (3)
  1. KENALOG [Suspect]
     Indication: BACK PAIN
     Dosage: KENALOG  ONCE  INJECTION
     Dates: start: 20130815
  2. VOLTAREN [Concomitant]
  3. EFFEXOR - XR [Concomitant]

REACTIONS (5)
  - Nocardia sepsis [None]
  - Paraspinal abscess [None]
  - Extradural abscess [None]
  - Injection site abscess [None]
  - Nocardiosis [None]
